FAERS Safety Report 9144619 (Version 1)
Quarter: 2013Q1

REPORT INFORMATION
  Report Type: Report from Study
  Country: AT (occurrence: AT)
  Receive Date: 20130306
  Receipt Date: 20130306
  Transmission Date: 20140127
  Serious: Yes (Hospitalization)
  Sender: FDA-Public Use
  Company Number: AT-ROCHE-1174906

PATIENT
  Age: 60 Year
  Sex: Female
  Weight: 88 kg

DRUGS (5)
  1. TRASTUZUMAB [Suspect]
     Indication: BREAST CANCER
     Dosage: DATE OF LAST DOSE PRIOR TO SAE: 19/DEC/2012
     Route: 042
     Dates: start: 20121017
  2. DOCETAXEL [Suspect]
     Indication: BREAST CANCER
     Dosage: LAST DOSE PRIOR TO SAE: 28/NOV/2012
     Route: 042
     Dates: start: 20121017
  3. RAMIPRIL [Concomitant]
     Dosage: 5/25MG
     Route: 065
     Dates: start: 2002, end: 20121225
  4. KCL TABLETS [Concomitant]
     Route: 065
  5. PERTUZUMAB [Suspect]
     Indication: BREAST CANCER
     Dosage: DATE OF LAST DOSE PRIOR TO SAE: 19/DEC/2012
     Route: 042
     Dates: start: 20121017

REACTIONS (1)
  - Bronchopneumonia [Recovered/Resolved]
